FAERS Safety Report 9905388 (Version 3)
Quarter: 2014Q1

REPORT INFORMATION
  Report Type: Report from Study
  Country: US (occurrence: US)
  Receive Date: 20140218
  Receipt Date: 20140313
  Transmission Date: 20141002
  Serious: Yes (Death, Hospitalization)
  Sender: FDA-Public Use
  Company Number: US-ACTELION-A-US2013-92803

PATIENT
  Age: 30 Year
  Sex: Female

DRUGS (8)
  1. VELETRI [Suspect]
     Indication: PULMONARY ARTERIAL HYPERTENSION
     Dosage: 29 NG/KG, PER MIN
     Route: 042
     Dates: start: 20131214
  2. VELETRI [Suspect]
     Dosage: 24 NG/KG, PER MIN
     Route: 042
     Dates: start: 20131211
  3. VELETRI [Suspect]
     Dosage: 20 NG/KG, PER MIN
     Route: 041
     Dates: start: 20131206
  4. KEFLEX [Suspect]
     Dosage: UNK
     Route: 048
     Dates: start: 20131220, end: 20131221
  5. TRACLEER [Concomitant]
     Indication: PULMONARY ARTERIAL HYPERTENSION
     Dosage: UNK
     Route: 048
  6. VENTAVIS [Concomitant]
     Indication: PULMONARY ARTERIAL HYPERTENSION
     Dosage: UNK
     Route: 055
  7. SILDENAFIL [Concomitant]
  8. COUMADIN [Concomitant]

REACTIONS (26)
  - Sepsis [Fatal]
  - Staphylococcal infection [Fatal]
  - Staphylococcus test positive [Fatal]
  - Cardiogenic shock [Fatal]
  - Bacteraemia [Not Recovered/Not Resolved]
  - Malaise [Not Recovered/Not Resolved]
  - Mechanical ventilation [Not Recovered/Not Resolved]
  - Myalgia [Recovered/Resolved]
  - Fatigue [Unknown]
  - Rash [Unknown]
  - Jugular vein distension [Unknown]
  - Nausea [Unknown]
  - Vomiting [Unknown]
  - Decreased appetite [Unknown]
  - Pruritus [Unknown]
  - Dyspnoea exertional [Unknown]
  - Urticaria [Unknown]
  - Drug hypersensitivity [Unknown]
  - Catheter site cellulitis [Recovered/Resolved]
  - Exfoliative rash [Unknown]
  - Catheter site infection [Recovered/Resolved]
  - Catheter site discharge [Recovered/Resolved]
  - Headache [Recovered/Resolved]
  - Catheter site erythema [Recovered/Resolved]
  - Blister [Recovered/Resolved]
  - Skin burning sensation [Recovered/Resolved]
